FAERS Safety Report 9566977 (Version 1)
Quarter: 2013Q3

REPORT INFORMATION
  Report Type: Spontaneous
  Country: US (occurrence: US)
  Receive Date: 20130930
  Receipt Date: 20130930
  Transmission Date: 20140515
  Serious: No
  Sender: FDA-Public Use
  Company Number: US-AMGEN-USASP2012060678

PATIENT
  Sex: Female

DRUGS (10)
  1. TRAMADOL HCL [Concomitant]
     Dosage: 50 MG, UNK
  2. XANAX [Concomitant]
     Dosage: 1 MG, UNK
  3. OMEGA 3                            /01334101/ [Concomitant]
     Dosage: 1000 MG, UNK
  4. MOBIC [Concomitant]
     Dosage: 7.5 MG, UNK
  5. VITAMIN D3 [Concomitant]
     Dosage: UNK
  6. CALCIUM CARBONATE W/MAGNESIUM [Concomitant]
     Dosage: UNK
  7. ENBREL [Suspect]
     Indication: RHEUMATOID ARTHRITIS
     Dosage: 50 MG, 2 TIMES/WK
     Route: 058
  8. ENBREL [Suspect]
     Indication: PSORIATIC ARTHROPATHY
  9. FOLIC ACID [Concomitant]
     Dosage: UNK
  10. METHOTREXATE [Concomitant]
     Dosage: 2.5 MG, UNK

REACTIONS (1)
  - Condition aggravated [Unknown]
